FAERS Safety Report 8805646 (Version 2)
Quarter: 2012Q4

REPORT INFORMATION
  Report Type: 
  Country: JP (occurrence: JP)
  Receive Date: 20120924
  Receipt Date: 20121109
  Transmission Date: 20130627
  Serious: Yes (Hospitalization)
  Sender: FDA-Public Use
  Company Number: JP-ROCHE-1128929

PATIENT
  Age: 54 Year
  Sex: Female

DRUGS (4)
  1. HERCEPTIN [Suspect]
     Indication: GASTRIC CANCER
     Dosage: day1
     Route: 041
  2. HERCEPTIN [Suspect]
     Indication: GASTRIC CANCER
     Route: 041
  3. CISPLATIN [Concomitant]
     Indication: GASTRIC CANCER
     Route: 041
  4. XELODA [Concomitant]
     Indication: GASTRIC CANCER
     Dosage: [Yasukusuri] for two weeks and one administering weeks
     Route: 048

REACTIONS (1)
  - Posterior reversible encephalopathy syndrome [Recovering/Resolving]
